FAERS Safety Report 4332912-1 (Version None)
Quarter: 2004Q2

REPORT INFORMATION
  Report Type: 
  Country: None (occurrence: None)
  Receive Date: 20040406
  Receipt Date: 20040205
  Transmission Date: 20050107
  Serious: Yes (Hospitalization)
  Sender: FDA-Public Use
  Company Number: 200410509FR

PATIENT
  Age: 32 Year
  Sex: Female

DRUGS (6)
  1. KETEK [Suspect]
     Indication: PNEUMONIA
     Route: 048
     Dates: start: 20040202, end: 20040205
  2. LAMICTAL ^BURROUGHS WELLCOME^ [Concomitant]
     Indication: EPILEPSY
     Route: 048
     Dates: start: 19930101
  3. TRILEPTAL [Concomitant]
     Indication: EPILEPSY
     Route: 048
     Dates: start: 20030215
  4. VISKEN [Concomitant]
     Route: 048
     Dates: start: 19930101
  5. L-THYROXIN ^HENNING GEORGE^ [Concomitant]
     Route: 048
     Dates: start: 19930101
  6. FORLAX [Concomitant]
     Route: 048
     Dates: start: 20010101

REACTIONS (9)
  - BALLISMUS [None]
  - CONVULSION [None]
  - DISTURBANCE IN ATTENTION [None]
  - DRUG INTERACTION [None]
  - DRUG LEVEL DECREASED [None]
  - HYPERREFLEXIA [None]
  - OVERDOSE [None]
  - PARTIAL SEIZURES [None]
  - SOMNOLENCE [None]
